FAERS Safety Report 25457734 (Version 1)
Quarter: 2025Q2

REPORT INFORMATION
  Report Type: Spontaneous
  Country: US (occurrence: US)
  Receive Date: 20250619
  Receipt Date: 20250619
  Transmission Date: 20250716
  Serious: Yes (Other)
  Sender: TEVA
  Company Number: US-TEVA-VS-3341176

PATIENT
  Age: 47 Year
  Sex: Female

DRUGS (1)
  1. METOCLOPRAMIDE [Suspect]
     Active Substance: METOCLOPRAMIDE
     Indication: Impaired gastric emptying
     Route: 048

REACTIONS (7)
  - Renal impairment [Unknown]
  - Nausea [Unknown]
  - Haematemesis [Unknown]
  - Vomiting [Unknown]
  - Blood cholesterol increased [Unknown]
  - Eating disorder [Unknown]
  - Hypertension [Unknown]
